FAERS Safety Report 7545597-8 (Version None)
Quarter: 2011Q2

REPORT INFORMATION
  Report Type: 
  Country: None (occurrence: None)
  Receive Date: 20110614
  Receipt Date: 20110606
  Transmission Date: 20111010
  Serious: Yes (Hospitalization)
  Sender: FDA-Public Use
  Company Number: JP-ASTELLAS-2011JP003491

PATIENT
  Sex: Female
  Weight: 37.5 kg

DRUGS (9)
  1. FERROSTEC TAIYO [Concomitant]
     Dosage: 50 MG, UID/QD
     Route: 065
  2. NICORANDIS [Concomitant]
     Dosage: 5 MG, TID
     Route: 065
  3. VESICARE [Suspect]
     Dosage: 5 MG, UID/QD
     Route: 048
     Dates: start: 20110124, end: 20110422
  4. CANDESARTAN CILEXETIL [Concomitant]
     Dosage: 8 MG, UID/QD
     Route: 065
  5. TAPIZOL [Concomitant]
     Dosage: 15 MG, UID/QD
     Route: 065
  6. AMLODIPINE [Concomitant]
     Dosage: 2.5 MG, UID/QD
     Route: 048
  7. BAZEDOXIFENE ACETATE [Concomitant]
     Dosage: 20 MG, UID/QD
     Route: 065
  8. ISOSORBIDE DINITRATE [Concomitant]
     Dosage: 20 MG, BID
     Route: 065
  9. GASMOTIN [Concomitant]
     Dosage: 5 MG, TID
     Route: 065
     Dates: start: 20110217

REACTIONS (2)
  - ABDOMINAL DISTENSION [None]
  - INTESTINAL OBSTRUCTION [None]
